FAERS Safety Report 19077248 (Version 2)
Quarter: 2022Q3

REPORT INFORMATION
  Report Type: Spontaneous
  Country: US (occurrence: US)
  Receive Date: 20210331
  Receipt Date: 20220809
  Transmission Date: 20221026
  Serious: Yes (Death)
  Sender: FDA-Public Use
  Company Number: US-SUN PHARMACEUTICAL INDUSTRIES LTD-2021R1-287854

PATIENT

DRUGS (1)
  1. RANITIDINE [Suspect]
     Active Substance: RANITIDINE
     Indication: Product used for unknown indication
     Dosage: UNK
     Route: 065
     Dates: start: 199804, end: 201902

REACTIONS (4)
  - Bone cancer [Fatal]
  - Nasal cavity cancer [Fatal]
  - Oesophageal carcinoma [Fatal]
  - Throat cancer [Fatal]

NARRATIVE: CASE EVENT DATE: 20190101
